FAERS Safety Report 19292259 (Version 2)
Quarter: 2022Q2

REPORT INFORMATION
  Report Type: Spontaneous
  Country: KW (occurrence: KW)
  Receive Date: 20210524
  Receipt Date: 20220606
  Transmission Date: 20220720
  Serious: Yes (Life-Threatening, Hospitalization, Other)
  Sender: FDA-Public Use
  Company Number: KW-LUPIN PHARMACEUTICALS INC.-2021-07575

PATIENT
  Age: 6 Year
  Sex: Female

DRUGS (2)
  1. IMIPRAMINE PAMOATE [Suspect]
     Active Substance: IMIPRAMINE PAMOATE
     Indication: Anxiety
     Dosage: 25 MILLIGRAM, QD
     Route: 065
  2. IMIPRAMINE PAMOATE [Suspect]
     Active Substance: IMIPRAMINE PAMOATE
     Indication: Parasomnia
     Dosage: 75 MILLIGRAM, QD
     Route: 065

REACTIONS (1)
  - Status epilepticus [Recovering/Resolving]
